FAERS Safety Report 24623480 (Version 1)
Quarter: 2024Q4

REPORT INFORMATION
  Report Type: Spontaneous
  Country: PT (occurrence: PT)
  Receive Date: 20241115
  Receipt Date: 20241115
  Transmission Date: 20250114
  Serious: No
  Sender: ALKEM
  Company Number: PT-ALKEM LABORATORIES LIMITED-PT-ALKEM-2024-11360

PATIENT
  Age: 74 Year
  Sex: Female

DRUGS (4)
  1. CEFIXIME [Suspect]
     Active Substance: CEFIXIME
     Indication: Urinary tract infection
     Dosage: UNK
     Route: 065
  2. CEFIXIME [Suspect]
     Active Substance: CEFIXIME
     Indication: Sinusitis
  3. LEVOFLOXACIN [Suspect]
     Active Substance: LEVOFLOXACIN
     Indication: Urinary tract infection
     Dosage: UNK
     Route: 065
  4. LEVOFLOXACIN [Suspect]
     Active Substance: LEVOFLOXACIN
     Indication: Sinusitis

REACTIONS (1)
  - Therapy non-responder [Unknown]
